FAERS Safety Report 11363288 (Version 18)
Quarter: 2021Q1

REPORT INFORMATION
  Report Type: Other
  Country: CA (occurrence: CA)
  Receive Date: 20150811
  Receipt Date: 20210122
  Transmission Date: 20210419
  Serious: Yes (Disabling, Other)
  Sender: FDA-Public Use
  Company Number: CA-ROCHE-1619409

PATIENT
  Age: 62 Year
  Sex: Female
  Weight: 54.4 kg

DRUGS (38)
  1. RITUXAN [Suspect]
     Active Substance: RITUXIMAB
     Indication: RHEUMATOID ARTHRITIS
     Dosage: DATE OF LAST DOSE: 13/JUL/2010
     Route: 042
     Dates: start: 20100625, end: 20200806
  2. ACETAMINOPHEN. [Concomitant]
     Active Substance: ACETAMINOPHEN
     Route: 048
     Dates: start: 20100629, end: 20100713
  3. METHYLPREDNISOLONE. [Concomitant]
     Active Substance: METHYLPREDNISOLONE
     Indication: PREMEDICATION
     Route: 042
     Dates: start: 20100625
  4. ARAVA [Concomitant]
     Active Substance: LEFLUNOMIDE
  5. OMEGA 3 [Concomitant]
     Active Substance: OMEGA-3 FATTY ACIDS
  6. ORENCIA [Concomitant]
     Active Substance: ABATACEPT
  7. CRANBERRY. [Concomitant]
     Active Substance: CRANBERRY
  8. XIIDRA [Concomitant]
     Active Substance: LIFITEGRAST
     Indication: DRY EYE
  9. DIPHENHYDRAMINE HCL [Concomitant]
     Active Substance: DIPHENHYDRAMINE HYDROCHLORIDE
     Route: 048
     Dates: start: 20100629
  10. ACETAMINOPHEN. [Concomitant]
     Active Substance: ACETAMINOPHEN
     Dosage: UP TO 6 TIMES DAILY
     Route: 048
  11. ABATACEPT [Concomitant]
     Active Substance: ABATACEPT
  12. OMEGA 3 [Concomitant]
     Active Substance: OMEGA-3 FATTY ACIDS
  13. RITUXAN [Suspect]
     Active Substance: RITUXIMAB
     Dosage: LATEST DOSE ON 15/NOV/2017
     Route: 042
     Dates: start: 20171101
  14. TELMISARTAN. [Concomitant]
     Active Substance: TELMISARTAN
     Indication: HYPERTENSION
     Route: 042
  15. VOLTAREN [Concomitant]
     Active Substance: DICLOFENAC SODIUM
  16. AMLODIPINE [Concomitant]
     Active Substance: AMLODIPINE BESYLATE
     Route: 065
  17. ACETAMINOPHEN. [Concomitant]
     Active Substance: ACETAMINOPHEN
     Route: 048
     Dates: start: 20161102, end: 20161102
  18. ARTHROTEC [Concomitant]
     Active Substance: DICLOFENAC SODIUM\MISOPROSTOL
  19. NEXIUM [Concomitant]
     Active Substance: ESOMEPRAZOLE MAGNESIUM
     Route: 048
  20. TYLENOL WITH CODEINE [Concomitant]
     Active Substance: ACETAMINOPHEN\CODEINE PHOSPHATE
  21. LEFLUNOMIDE. [Concomitant]
     Active Substance: LEFLUNOMIDE
     Indication: RHEUMATOID ARTHRITIS
     Route: 048
     Dates: start: 201208
  22. DIPHENHYDRAMINE HCL [Concomitant]
     Active Substance: DIPHENHYDRAMINE HYDROCHLORIDE
     Route: 048
     Dates: start: 20161102, end: 20161102
  23. ACETAMINOPHEN. [Concomitant]
     Active Substance: ACETAMINOPHEN
     Dates: start: 20161116
  24. GABAPENTIN. [Concomitant]
     Active Substance: GABAPENTIN
  25. NAPROXEN. [Suspect]
     Active Substance: NAPROXEN
     Indication: PAIN
     Route: 065
  26. DIPHENHYDRAMINE HCL [Concomitant]
     Active Substance: DIPHENHYDRAMINE HYDROCHLORIDE
     Route: 048
     Dates: start: 20110414, end: 20110414
  27. DIPHENHYDRAMINE HCL [Concomitant]
     Active Substance: DIPHENHYDRAMINE HYDROCHLORIDE
     Route: 048
     Dates: start: 20161116
  28. ACETAMINOPHEN. [Concomitant]
     Active Substance: ACETAMINOPHEN
     Route: 048
     Dates: start: 20110428, end: 20110428
  29. ACETAMINOPHEN. [Concomitant]
     Active Substance: ACETAMINOPHEN
     Route: 048
     Dates: start: 20161116
  30. DICLOFENAC [Concomitant]
     Active Substance: DICLOFENAC
     Indication: RHEUMATOID ARTHRITIS
     Route: 048
  31. RITUXAN [Suspect]
     Active Substance: RITUXIMAB
     Route: 042
     Dates: start: 20110414, end: 20110428
  32. RITUXAN [Suspect]
     Active Substance: RITUXIMAB
     Dosage: DAY 1; 15
     Route: 042
     Dates: start: 20100629
  33. DIPHENHYDRAMINE HCL [Concomitant]
     Active Substance: DIPHENHYDRAMINE HYDROCHLORIDE
     Indication: PREMEDICATION
     Route: 048
     Dates: start: 20100625
  34. DIPHENHYDRAMINE HCL [Concomitant]
     Active Substance: DIPHENHYDRAMINE HYDROCHLORIDE
     Route: 048
     Dates: start: 20110428, end: 20110428
  35. ACETAMINOPHEN. [Concomitant]
     Active Substance: ACETAMINOPHEN
     Indication: PREMEDICATION
     Route: 048
     Dates: start: 20100625, end: 20110428
  36. ACETAMINOPHEN. [Concomitant]
     Active Substance: ACETAMINOPHEN
     Route: 048
     Dates: start: 20110414, end: 20110414
  37. METHYLPREDNISOLONE. [Concomitant]
     Active Substance: METHYLPREDNISOLONE
     Route: 042
     Dates: start: 20100629
  38. ZOPLICONE [Concomitant]
     Active Substance: ZOPICLONE
     Route: 048

REACTIONS (28)
  - Arthrodesis [Unknown]
  - Weight decreased [Unknown]
  - Nasopharyngitis [Recovering/Resolving]
  - Bone lesion [Unknown]
  - Joint swelling [Unknown]
  - Sputum discoloured [Not Recovered/Not Resolved]
  - Cough [Not Recovered/Not Resolved]
  - Blood pressure systolic increased [Unknown]
  - Clostridium difficile infection [Recovered/Resolved]
  - Heart rate decreased [Unknown]
  - Infection [Unknown]
  - Pain [Unknown]
  - Drug ineffective [Unknown]
  - Lower respiratory tract infection [Recovered/Resolved]
  - Musculoskeletal stiffness [Unknown]
  - Bone erosion [Unknown]
  - Impaired healing [Not Recovered/Not Resolved]
  - Fatigue [Recovering/Resolving]
  - Tender joint count [Unknown]
  - Device failure [Unknown]
  - Arthropathy [Recovered/Resolved with Sequelae]
  - Arthropathy [Not Recovered/Not Resolved]
  - Nodule [Unknown]
  - Blood pressure fluctuation [Unknown]
  - Tendon disorder [Unknown]
  - Arthritis infective [Not Recovered/Not Resolved]
  - Hypertension [Unknown]
  - Heart rate irregular [Unknown]

NARRATIVE: CASE EVENT DATE: 201111
